FAERS Safety Report 6463619-2 (Version None)
Quarter: 2009Q4

REPORT INFORMATION
  Report Type: 
  Country: None (occurrence: None)
  Receive Date: 20091201
  Receipt Date: 20091119
  Transmission Date: 20100525
  Serious: Yes (Other)
  Sender: FDA-Public Use
  Company Number: PHHY2009BR45238

PATIENT
  Age: 79 Year
  Sex: Male

DRUGS (6)
  1. EXELON [Suspect]
     Indication: DEMENTIA ALZHEIMER'S TYPE
     Dosage: 1.5 MG, BID
     Route: 048
     Dates: start: 20091011
  2. EXELON [Suspect]
     Dosage: 1.5 MG, UNK
     Route: 048
     Dates: start: 20070101
  3. DIOCOMB SI [Suspect]
     Indication: HYPERTENSION
     Dosage: 80MG IN THE MORNING AND 20 MG AT NIGHT
     Dates: start: 20040101
  4. METTA SR [Concomitant]
     Dosage: 1 DF, QD
  5. SOMALGIN CARDIO [Concomitant]
     Indication: ANTICOAGULANT THERAPY
     Dosage: 1 DF, QD
     Route: 048
  6. DIAZEPAM [Concomitant]
     Dosage: 5 OR 10 MG PER DAY AS NEEDED
     Route: 048

REACTIONS (10)
  - ASTHENIA [None]
  - BACTERIAL INFECTION [None]
  - BLOOD GLUCOSE INCREASED [None]
  - FEELING ABNORMAL [None]
  - FUNGAL INFECTION [None]
  - GLYCOSYLATED HAEMOGLOBIN INCREASED [None]
  - MALAISE [None]
  - SEBORRHOEIC DERMATITIS [None]
  - TYPE 2 DIABETES MELLITUS [None]
  - URINARY INCONTINENCE [None]
